FAERS Safety Report 8985525 (Version 1)
Quarter: 2012Q4

REPORT INFORMATION
  Report Type: 
  Country: GB (occurrence: GB)
  Receive Date: 20121226
  Receipt Date: 20121226
  Transmission Date: 20130627
  Serious: Yes (Hospitalization)
  Sender: FDA-Public Use
  Company Number: GB-ASTRAZENECA-2012SE93764

PATIENT
  Age: 84 Year
  Sex: Female

DRUGS (5)
  1. LISINOPRIL [Suspect]
     Indication: BLOOD PRESSURE
     Route: 048
  2. AMLODIPINE [Suspect]
     Indication: BLOOD PRESSURE
     Route: 065
  3. FOLIC ACID [Concomitant]
     Indication: MUSCLE SPASMS
     Dosage: UNKNOWN
  4. GALFER SYRUP [Concomitant]
     Indication: MINERAL SUPPLEMENTATION
     Dosage: 140M/G/5ML
  5. BISOPROLOL FUMARATE [Concomitant]
     Indication: ANGINA PECTORIS

REACTIONS (4)
  - Hypertension [Unknown]
  - Muscle spasms [Unknown]
  - Muscle spasms [Unknown]
  - Drug ineffective [Unknown]
